FAERS Safety Report 23654673 (Version 1)
Quarter: 2024Q1

REPORT INFORMATION
  Report Type: Spontaneous
  Country: US (occurrence: US)
  Receive Date: 20240320
  Receipt Date: 20240320
  Transmission Date: 20240409
  Serious: No
  Sender: FDA-Public Use
  Company Number: US-002147023-NVSC2024US060231

PATIENT
  Sex: Female

DRUGS (1)
  1. EGATEN [Suspect]
     Active Substance: TRICLABENDAZOLE
     Indication: Product used for unknown indication
     Dosage: 250 MG, BID
     Route: 065

REACTIONS (3)
  - Product dose omission issue [Unknown]
  - Malaise [Unknown]
  - Product supply issue [Unknown]
